FAERS Safety Report 9991714 (Version 2)
Quarter: 2014Q1

REPORT INFORMATION
  Report Type: Report from Study
  Country: CA (occurrence: CA)
  Receive Date: 20140310
  Receipt Date: 20140310
  Transmission Date: 20141002
  Serious: Yes (Other)
  Sender: FDA-Public Use
  Company Number: CA-ABBVIE-14P-028-1206629-00

PATIENT
  Age: 61 Year
  Sex: Male

DRUGS (6)
  1. HUMIRA [Suspect]
     Indication: PSORIATIC ARTHROPATHY
     Route: 058
     Dates: start: 20110305
  2. BETAHISTINE [Concomitant]
     Indication: PRODUCT USED FOR UNKNOWN INDICATION
     Route: 048
  3. FENTANYL [Concomitant]
     Indication: PAIN MANAGEMENT
     Dosage: AS NEEDED
     Route: 062
  4. ASACOL [Concomitant]
     Indication: ANTIINFLAMMATORY THERAPY
     Dosage: AS NEEDED
     Route: 048
  5. METFORMIN [Concomitant]
     Indication: TYPE 2 DIABETES MELLITUS
     Route: 048
     Dates: start: 2004
  6. NAPROXEN [Concomitant]
     Indication: PAIN MANAGEMENT
     Dosage: AS NEEDED
     Route: 048
     Dates: start: 2000

REACTIONS (4)
  - Arthralgia [Recovering/Resolving]
  - Osteoarthritis [Unknown]
  - Joint swelling [Recovering/Resolving]
  - Osteoarthritis [Unknown]
